FAERS Safety Report 5140235-6 (Version None)
Quarter: 2006Q4

REPORT INFORMATION
  Report Type: 
  Country: None (occurrence: None)
  Receive Date: 20061025
  Receipt Date: 20061018
  Transmission Date: 20070319
  Serious: Yes (Hospitalization)
  Sender: FDA-Public Use
  Company Number: MEDI-0005051

PATIENT
  Age: 48 Year
  Sex: 0

DRUGS (3)
  1. ETHYOL [Suspect]
     Dosage: 1 IN 1 D
     Dates: end: 20060918
  2. RADIATION THERAPY [Concomitant]
  3. ERBITUX [Concomitant]

REACTIONS (4)
  - HYPOTENSION [None]
  - INJECTION SITE ERYTHEMA [None]
  - MUCOSAL INFLAMMATION [None]
  - PYREXIA [None]
